FAERS Safety Report 8845003 (Version 1)
Quarter: 2012Q4

REPORT INFORMATION
  Report Type: Spontaneous
  Country: US (occurrence: None)
  Receive Date: 20121002
  Receipt Date: 20121002
  Transmission Date: 20130627
  Serious: Yes (Hospitalization)
  Sender: FDA-Public Use
  Company Number: RB-37988-2012

PATIENT
  Age: 44 Year
  Sex: Female

DRUGS (1)
  1. SUBOXONE [Suspect]
     Indication: DRUG DEPENDENCE
     Dosage: (8 mg BID Sublingual)
     Route: 060
     Dates: start: 20120118

REACTIONS (3)
  - Dysuria [None]
  - Oedema peripheral [None]
  - Kidney infection [None]
